FAERS Safety Report 7438001-1 (Version None)
Quarter: 2011Q2

REPORT INFORMATION
  Report Type: 
  Country: None (occurrence: None)
  Receive Date: 20110426
  Receipt Date: 20110414
  Transmission Date: 20111010
  Serious: Yes (Hospitalization)
  Sender: FDA-Public Use
  Company Number: PL-JNJFOC-20110308929

PATIENT
  Sex: Female
  Weight: 66 kg

DRUGS (9)
  1. GOLIMUMAB [Suspect]
     Indication: RHEUMATOID ARTHRITIS
     Route: 058
  2. GOLIMUMAB [Suspect]
     Route: 058
  3. GOLIMUMAB [Suspect]
     Route: 058
  4. ACIDUM FOLICUM [Concomitant]
     Route: 048
  5. LOSARTAN POTASSIUM [Concomitant]
     Route: 048
  6. GOLIMUMAB [Suspect]
     Route: 058
  7. METHOTREXATE [Suspect]
     Indication: RHEUMATOID ARTHRITIS
     Route: 048
  8. METHOTREXATE [Concomitant]
     Route: 048
  9. PLACEBO [Suspect]
     Indication: RHEUMATOID ARTHRITIS
     Route: 058

REACTIONS (2)
  - BONE PAIN [None]
  - SARCOIDOSIS [None]
